FAERS Safety Report 20986982 (Version 1)
Quarter: 2022Q2

REPORT INFORMATION
  Report Type: Spontaneous
  Country: US (occurrence: US)
  Receive Date: 20220621
  Receipt Date: 20220621
  Transmission Date: 20220721
  Serious: Yes (Other)
  Sender: FDA-Public Use
  Company Number: US-OTSUKA-2022_032130

PATIENT
  Age: 45 Year
  Sex: Female

DRUGS (1)
  1. REXULTI [Suspect]
     Active Substance: BREXPIPRAZOLE
     Indication: Major depression
     Dosage: 1 MG, REXULTI 1 MG AND TOOK THE MEDICATION FOR 3 WEEKS
     Route: 065

REACTIONS (2)
  - Wolff-Parkinson-White syndrome [Unknown]
  - Atrial fibrillation [Unknown]
